FAERS Safety Report 9114393 (Version 1)
Quarter: 2013Q1

REPORT INFORMATION
  Report Type: Spontaneous
  Country: US (occurrence: US)
  Receive Date: 20130208
  Receipt Date: 20130208
  Transmission Date: 20140127
  Serious: Yes (Hospitalization, Other)
  Sender: FDA-Public Use
  Company Number: US-ASTRAZENECA-2013SE03799

PATIENT
  Age: 21744 Day
  Sex: Female
  Weight: 99.8 kg

DRUGS (26)
  1. TOPROL XL [Suspect]
     Route: 048
  2. TOPROL XL [Suspect]
     Route: 048
  3. OMEPRAZOLE [Suspect]
     Route: 048
  4. CRESTOR [Suspect]
     Route: 048
  5. SANDOSTATIN [Suspect]
     Dosage: MONTHLY
     Route: 065
  6. SANDOSTATIN [Suspect]
     Dosage: TWO IN NUMBER MONTHLY
     Route: 065
  7. SUTENT [Suspect]
     Route: 065
     Dates: start: 20121005
  8. AFINITOR [Suspect]
     Route: 065
     Dates: end: 20120919
  9. MANY PILLS [Concomitant]
  10. INSULIN [Concomitant]
  11. NOVOLOG [Concomitant]
  12. LANTUS [Concomitant]
  13. TRIAMTERENE [Concomitant]
  14. PANCRELIPASE [Concomitant]
     Dosage: AS NEEDED
  15. OXYCODONE [Concomitant]
     Dosage: 5 MG, PRN
  16. HYDROMORPHONE [Concomitant]
     Dosage: 4-5 MG, PRN
  17. MEDICAL MARIJUANA [Concomitant]
     Indication: PAIN
  18. MEDICAL MARIJUANA [Concomitant]
     Indication: NAUSEA
  19. MEDICAL MARIJUANA [Concomitant]
     Indication: ANXIETY
  20. TRICOR [Concomitant]
  21. STRESSTABS [Concomitant]
  22. GINKGO BILOBA [Concomitant]
  23. MISGRALEIF [Concomitant]
  24. VIT D [Concomitant]
  25. CURCUMIN [Concomitant]
  26. FISH OIL [Concomitant]
     Dosage: THREE TIMES A WEEK

REACTIONS (14)
  - Pancreatic carcinoma [Unknown]
  - Haemorrhoidal haemorrhage [Unknown]
  - Pain in jaw [Unknown]
  - Blood triglycerides increased [Unknown]
  - Blood cholesterol increased [Unknown]
  - Palmar-plantar erythrodysaesthesia syndrome [Unknown]
  - Epistaxis [Unknown]
  - Diarrhoea [Unknown]
  - Glossodynia [Unknown]
  - Nausea [Unknown]
  - Vomiting [Unknown]
  - Nasopharyngitis [Unknown]
  - Hypertension [Unknown]
  - Intentional drug misuse [Unknown]
